FAERS Safety Report 8281385-5 (Version None)
Quarter: 2012Q2

REPORT INFORMATION
  Report Type: 
  Country: None (occurrence: None)
  Receive Date: 20120413
  Receipt Date: 20120329
  Transmission Date: 20120825
  Serious: Yes (Life-Threatening, Hospitalization, Other)
  Sender: FDA-Public Use
  Company Number: FR-AMGEN-FRASP2012017382

PATIENT
  Age: 68 Year
  Sex: Male
  Weight: 74 kg

DRUGS (10)
  1. ENBREL [Suspect]
     Indication: ANKYLOSING SPONDYLITIS
     Dosage: 1 DF, WEEKLY
     Route: 058
     Dates: start: 20100624, end: 20120101
  2. NEXIUM [Concomitant]
     Dosage: UNK
  3. INDAPAMIDE [Concomitant]
     Dosage: UNK
     Dates: start: 20100101
  4. PERIDYS [Concomitant]
     Dosage: UNK
  5. ALLOPURINOL [Concomitant]
     Dosage: UNK
     Dates: start: 20100101
  6. INDAPAMIDE [Concomitant]
     Dosage: UNK
     Dates: start: 20100101
  7. ACETAMINOPHEN [Concomitant]
     Dosage: UNK
  8. SIMVASTATIN [Concomitant]
     Dosage: UNK
     Dates: start: 20100101
  9. LERCANIDIPINE [Concomitant]
     Dosage: UNK
     Dates: start: 20100101
  10. NEXIUM [Concomitant]
     Dosage: UNK
     Dates: start: 20100101

REACTIONS (3)
  - BRONCHIAL CARCINOMA [None]
  - METASTASES TO CENTRAL NERVOUS SYSTEM [None]
  - HEMIPLEGIA [None]
